FAERS Safety Report 4323201-X (Version None)
Quarter: 2004Q1

REPORT INFORMATION
  Report Type: 
  Country: None (occurrence: None)
  Receive Date: 20040322
  Receipt Date: 20040312
  Transmission Date: 20041129
  Serious: Yes (Hospitalization)
  Sender: FDA-Public Use
  Company Number: HQWYE843715MAR04

PATIENT
  Age: 54 Year
  Sex: Male
  Weight: 79.45 kg

DRUGS (8)
  1. EFFEXOR XR [Suspect]
     Indication: BIPOLAR DISORDER
     Dosage: 150 MG 1X PER 1 DAY, ORAL : 75 MG 1X PER 1 DAY, ORAL : 150 MG 1X PER 1 DAY, ORAL
     Route: 048
     Dates: start: 20031201, end: 20040201
  2. EFFEXOR XR [Suspect]
     Indication: DEPRESSION
     Dosage: 150 MG 1X PER 1 DAY, ORAL : 75 MG 1X PER 1 DAY, ORAL : 150 MG 1X PER 1 DAY, ORAL
     Route: 048
     Dates: start: 20031201, end: 20040201
  3. EFFEXOR XR [Suspect]
     Indication: BIPOLAR DISORDER
     Dosage: 150 MG 1X PER 1 DAY, ORAL : 75 MG 1X PER 1 DAY, ORAL : 150 MG 1X PER 1 DAY, ORAL
     Route: 048
     Dates: start: 20040201, end: 20040301
  4. EFFEXOR XR [Suspect]
     Indication: DEPRESSION
     Dosage: 150 MG 1X PER 1 DAY, ORAL : 75 MG 1X PER 1 DAY, ORAL : 150 MG 1X PER 1 DAY, ORAL
     Route: 048
     Dates: start: 20040201, end: 20040301
  5. EFFEXOR XR [Suspect]
     Indication: BIPOLAR DISORDER
     Dosage: 150 MG 1X PER 1 DAY, ORAL : 75 MG 1X PER 1 DAY, ORAL : 150 MG 1X PER 1 DAY, ORAL
     Route: 048
     Dates: start: 20040301
  6. EFFEXOR XR [Suspect]
     Indication: DEPRESSION
     Dosage: 150 MG 1X PER 1 DAY, ORAL : 75 MG 1X PER 1 DAY, ORAL : 150 MG 1X PER 1 DAY, ORAL
     Route: 048
     Dates: start: 20040301
  7. LAMICTAL [Concomitant]
  8. LITHIUM [Concomitant]

REACTIONS (3)
  - DEPRESSION SUICIDAL [None]
  - DRUG WITHDRAWAL SYNDROME [None]
  - INSOMNIA [None]
